FAERS Safety Report 9351425 (Version 1)
Quarter: 2013Q2

REPORT INFORMATION
  Report Type: Spontaneous
  Country: US (occurrence: US)
  Receive Date: 20130617
  Receipt Date: 20130617
  Transmission Date: 20140414
  Serious: Yes (Hospitalization)
  Sender: FDA-Public Use
  Company Number: US-UCBSA-064645

PATIENT
  Sex: Female

DRUGS (2)
  1. VIMPAT [Suspect]
     Indication: CONVULSION
  2. KEPPRA [Suspect]
     Indication: CONVULSION

REACTIONS (2)
  - Malaise [Unknown]
  - Convulsion [Recovering/Resolving]
